FAERS Safety Report 4365239-2 (Version None)
Quarter: 2004Q2

REPORT INFORMATION
  Report Type: 
  Country: None (occurrence: None)
  Receive Date: 20040525
  Receipt Date: 20040414
  Transmission Date: 20050107
  Serious: No
  Sender: FDA-Public Use
  Company Number: PHEH2004US04200

PATIENT
  Age: 53 Year
  Sex: Female

DRUGS (1)
  1. ZELNORM [Suspect]
     Indication: IRRITABLE BOWEL SYNDROME
     Dosage: 2 MG,  BID, ORAL
     Route: 048
     Dates: start: 20040303, end: 20040330

REACTIONS (4)
  - ARTHRALGIA [None]
  - DIZZINESS [None]
  - PALPITATIONS [None]
  - SOMNOLENCE [None]
